FAERS Safety Report 18429700 (Version 2)
Quarter: 2020Q4

REPORT INFORMATION
  Report Type: Spontaneous
  Country: US (occurrence: US)
  Receive Date: 20201026
  Receipt Date: 20201125
  Transmission Date: 20210114
  Serious: Yes (Death, Other)
  Sender: FDA-Public Use
  Company Number: US-GILEAD-2020-0501216

PATIENT
  Age: 64 Year
  Sex: Male
  Weight: 93.6 kg

DRUGS (36)
  1. FENTANYL. [Concomitant]
     Active Substance: FENTANYL
  2. HALOPERIDOL. [Concomitant]
     Active Substance: HALOPERIDOL
  3. INSULIN GLARGINE [Concomitant]
     Active Substance: INSULIN GLARGINE
  4. IPRATROPIUM/ALBUTEROL [Concomitant]
     Active Substance: ALBUTEROL\IPRATROPIUM
  5. LOSARTAN. [Concomitant]
     Active Substance: LOSARTAN
  6. MORPHINE [Concomitant]
     Active Substance: MORPHINE
  7. RIFAXIMIN. [Concomitant]
     Active Substance: RIFAXIMIN
  8. VASOPRESSIN. [Concomitant]
     Active Substance: VASOPRESSIN
  9. IOHEXOL [Concomitant]
     Active Substance: IOHEXOL
  10. LORAZEPAM. [Concomitant]
     Active Substance: LORAZEPAM
  11. MAGOX [Concomitant]
  12. NOREPINEPHRINE. [Concomitant]
     Active Substance: NOREPINEPHRINE
  13. PANTOPRAZOLE [Concomitant]
     Active Substance: PANTOPRAZOLE
  14. PROPRANOLOL [Concomitant]
     Active Substance: PROPRANOLOL HYDROCHLORIDE
  15. INSULIN LISPRO [Concomitant]
     Active Substance: INSULIN LISPRO
  16. METOPROLOL ACTAVIS [METOPROLOL SUCCINATE] [Concomitant]
  17. REMDESIVIR. [Suspect]
     Active Substance: REMDESIVIR
     Indication: COVID-19
     Dosage: 200 MG, ONCE
     Route: 042
     Dates: start: 20200925, end: 20200925
  18. ACETAMINOPHEN. [Concomitant]
     Active Substance: ACETAMINOPHEN
  19. ALBUTEROL [SALBUTAMOL] [Concomitant]
     Active Substance: ALBUTEROL
  20. HYDROMORPHONE [Concomitant]
     Active Substance: HYDROMORPHONE
  21. PROPOFOL. [Concomitant]
     Active Substance: PROPOFOL
  22. VANCOMYCIN [Concomitant]
     Active Substance: VANCOMYCIN
  23. DEXAMETHASONE. [Concomitant]
     Active Substance: DEXAMETHASONE
  24. PRAVASTATIN. [Concomitant]
     Active Substance: PRAVASTATIN
  25. SPIRONOLACTONE. [Concomitant]
     Active Substance: SPIRONOLACTONE
  26. REMDESIVIR. [Suspect]
     Active Substance: REMDESIVIR
     Dosage: 100 MG, QD
     Route: 042
     Dates: start: 20200926, end: 20200926
  27. ALBUMIN [Concomitant]
     Active Substance: ALBUMIN HUMAN
  28. ONDANSETRON [Concomitant]
     Active Substance: ONDANSETRON
  29. ASPIRIN [ACETYLSALICYLIC ACID] [Concomitant]
     Active Substance: ASPIRIN
  30. ROCURONIUM [Concomitant]
     Active Substance: ROCURONIUM BROMIDE
  31. BICARBONATE [Concomitant]
     Active Substance: SODIUM BICARBONATE
  32. FUROSEMIDE. [Concomitant]
     Active Substance: FUROSEMIDE
  33. GLYCOPYRROLATE [GLYCOPYRRONIUM] [Concomitant]
     Active Substance: GLYCOPYRRONIUM
  34. PHENYLEPHRINE [Concomitant]
     Active Substance: PHENYLEPHRINE HYDROCHLORIDE
  35. ZOSYN [Concomitant]
     Active Substance: PIPERACILLIN SODIUM\TAZOBACTAM SODIUM
  36. SODIUM ZIRCONIUM CYCLOSILICATE. [Concomitant]
     Active Substance: SODIUM ZIRCONIUM CYCLOSILICATE

REACTIONS (8)
  - Sepsis [Fatal]
  - Acute respiratory failure [Unknown]
  - International normalised ratio increased [Not Recovered/Not Resolved]
  - Acute kidney injury [Not Recovered/Not Resolved]
  - Blood bilirubin increased [Not Recovered/Not Resolved]
  - Multiple organ dysfunction syndrome [Unknown]
  - Alanine aminotransferase increased [Not Recovered/Not Resolved]
  - Septic shock [Fatal]

NARRATIVE: CASE EVENT DATE: 202009
